FAERS Safety Report 10214231 (Version 1)
Quarter: 2014Q2

REPORT INFORMATION
  Report Type: Spontaneous
  Country: US (occurrence: US)
  Receive Date: 20140603
  Receipt Date: 20140603
  Transmission Date: 20141212
  Serious: No
  Sender: FDA-Public Use
  Company Number: US-009507513-1405USA010675

PATIENT
  Age: 9 Year
  Sex: Female

DRUGS (3)
  1. CLARITIN REDITABS 12HR [Suspect]
     Indication: HOUSE DUST ALLERGY
     Dosage: 10 MG, ONCE
     Route: 048
     Dates: start: 20140510
  2. CLARITIN REDITABS 12HR [Suspect]
     Dosage: 10 MG, ONCE
     Route: 048
     Dates: start: 20140509
  3. CLARITIN REDITABS 12HR [Suspect]
     Dosage: UNK, QD PRN
     Route: 048

REACTIONS (2)
  - Accidental overdose [Unknown]
  - Off label use [Unknown]
